FAERS Safety Report 5928804-4 (Version None)
Quarter: 2008Q4

REPORT INFORMATION
  Report Type: 
  Country: None (occurrence: None)
  Receive Date: 20081020
  Receipt Date: 20080915
  Transmission Date: 20090506
  Serious: Yes (Other)
  Sender: FDA-Public Use
  Company Number: CL002092008

PATIENT
  Age: 62 Year
  Sex: Male

DRUGS (4)
  1. CIPROFLOXACIN [Suspect]
     Indication: LOWER RESPIRATORY TRACT INFECTION
     Dosage: 500 MG; TWO TO ONE DAYS
  2. BECLOMETHASONE DIPROPIONATE [Concomitant]
  3. PREDNISOLONE [Concomitant]
  4. ALBUTEROL SULFATE [Concomitant]

REACTIONS (1)
  - TENDON RUPTURE [None]
